FAERS Safety Report 4719818-0 (Version None)
Quarter: 2005Q3

REPORT INFORMATION
  Report Type: 
  Country: None (occurrence: None)
  Receive Date: 20050721
  Receipt Date: 20041117
  Transmission Date: 20060218
  Serious: No
  Sender: FDA-Public Use
  Company Number: US-GLAXOSMITHKLINE-A0534318A

PATIENT
  Age: 82 Year
  Sex: Male

DRUGS (3)
  1. AVANDIA [Suspect]
     Dosage: 4MG PER DAY
     Route: 048
     Dates: start: 20041028
  2. GLUCOTROL [Concomitant]
  3. FLU SHOT [Concomitant]

REACTIONS (4)
  - MUSCLE SPASMS [None]
  - NERVOUSNESS [None]
  - OEDEMA [None]
  - RASH [None]
